FAERS Safety Report 16705524 (Version 1)
Quarter: 2019Q4

REPORT INFORMATION
  Report Type: Spontaneous
  Country: US (occurrence: US)
  Receive Date: 20190814
  Receipt Date: 20190814
  Transmission Date: 20200122
  Serious: No
  Sender: FDA-Public Use
  Company Number: None

PATIENT
  Age: 26 Year
  Sex: Female

DRUGS (4)
  1. INVEGA SUSTENNA [Suspect]
     Active Substance: PALIPERIDONE PALMITATE
     Indication: SCHIZOAFFECTIVE DISORDER BIPOLAR TYPE
     Dosage: ?          OTHER FREQUENCY:EVERY 28 DAYS;?
     Route: 030
  2. NICORETTE GUM 2MG [Concomitant]
  3. MOM [Concomitant]
     Active Substance: MAGNESIUM HYDROXIDE
  4. LITHIUM CARBONATE 459MG BID [Concomitant]

REACTIONS (8)
  - Self-injurious ideation [None]
  - Mania [None]
  - Dizziness [None]
  - Thought blocking [None]
  - Headache [None]
  - Amenorrhoea [None]
  - Galactorrhoea [None]
  - Disorganised speech [None]

NARRATIVE: CASE EVENT DATE: 20190612
